FAERS Safety Report 13101842 (Version 3)
Quarter: 2017Q1

REPORT INFORMATION
  Report Type: Spontaneous
  Country: US (occurrence: US)
  Receive Date: 20170110
  Receipt Date: 20170206
  Transmission Date: 20170428
  Serious: No
  Sender: FDA-Public Use
  Company Number: US-PFIZER INC-2017005791

PATIENT
  Age: 66 Year
  Sex: Male
  Weight: 105 kg

DRUGS (6)
  1. VENLAFAXINE HCL [Suspect]
     Active Substance: VENLAFAXINE HYDROCHLORIDE
     Indication: ANTIDEPRESSANT THERAPY
     Dosage: 75 MG, 2X/DAY
     Dates: start: 20161024, end: 20161026
  2. ACEBUTOLOL [Concomitant]
     Active Substance: ACEBUTOLOL
     Indication: BLOOD PRESSURE ABNORMAL
     Dosage: 200 MG, 1X/DAY
     Route: 048
  3. ALPRAZOLAM. [Concomitant]
     Active Substance: ALPRAZOLAM
     Indication: PANIC DISORDER
     Dosage: 1 MG, AS NEEDED
     Route: 048
  4. SIMVASTATIN. [Concomitant]
     Active Substance: SIMVASTATIN
     Indication: BLOOD CHOLESTEROL INCREASED
     Dosage: 40 MG, 1X/DAY
     Route: 048
  5. ALPRAZOLAM. [Concomitant]
     Active Substance: ALPRAZOLAM
     Indication: AGORAPHOBIA
     Dosage: 1 MG, EVERY 4 HRS (TO A TOTAL OF 6MG PER DAY)
     Route: 048
  6. FINASTERIDE. [Concomitant]
     Active Substance: FINASTERIDE
     Indication: PROSTATOMEGALY
     Dosage: 5 MG, 1X/DAY AT BEDTIME
     Route: 048

REACTIONS (4)
  - Condition aggravated [Unknown]
  - Personality change [Recovered/Resolved]
  - Anxiety [Unknown]
  - Panic disorder [Recovered/Resolved]

NARRATIVE: CASE EVENT DATE: 20161025
